FAERS Safety Report 23495545 (Version 3)
Quarter: 2024Q1

REPORT INFORMATION
  Report Type: Spontaneous
  Country: JP (occurrence: JP)
  Receive Date: 20240207
  Receipt Date: 20240220
  Transmission Date: 20240409
  Serious: Yes (Other)
  Sender: FDA-Public Use
  Company Number: JP-BAYER-2024A015352

PATIENT
  Age: 70 Year
  Sex: Male

DRUGS (12)
  1. KERENDIA [Interacting]
     Active Substance: FINERENONE
     Indication: Chronic kidney disease
     Dosage: UNK
     Route: 048
     Dates: start: 20231027, end: 20240126
  2. KERENDIA [Interacting]
     Active Substance: FINERENONE
     Indication: Type 2 diabetes mellitus
  3. DAPAGLIFLOZIN [Interacting]
     Active Substance: DAPAGLIFLOZIN
     Indication: Chronic kidney disease
     Route: 048
  4. DAPAGLIFLOZIN [Interacting]
     Active Substance: DAPAGLIFLOZIN
     Indication: Type 2 diabetes mellitus
  5. BENZBROMARONE [Concomitant]
     Active Substance: BENZBROMARONE
  6. BENZBROMARONE [Concomitant]
     Active Substance: BENZBROMARONE
     Dosage: UNK
     Dates: start: 20240209
  7. VOGLIBOSE [Concomitant]
     Active Substance: VOGLIBOSE
  8. VOGLIBOSE [Concomitant]
     Active Substance: VOGLIBOSE
     Dosage: UNK
     Dates: start: 20240209
  9. ATORVASTATIN [Concomitant]
     Active Substance: ATORVASTATIN
  10. ATORVASTATIN [Concomitant]
     Active Substance: ATORVASTATIN
     Dosage: UNK
     Dates: start: 20240209
  11. AMLODIPINE [Concomitant]
     Active Substance: AMLODIPINE BESYLATE
  12. AMLODIPINE [Concomitant]
     Active Substance: AMLODIPINE BESYLATE
     Dosage: UNK
     Dates: start: 20240209

REACTIONS (2)
  - Renal impairment [None]
  - Drug interaction [None]

NARRATIVE: CASE EVENT DATE: 20240126
